FAERS Safety Report 12276482 (Version 1)
Quarter: 2016Q2

REPORT INFORMATION
  Report Type: Report from Study
  Country: CN (occurrence: CN)
  Receive Date: 20160418
  Receipt Date: 20160418
  Transmission Date: 20160815
  Serious: Yes (Other)
  Sender: FDA-Public Use
  Company Number: CN-ROCHE-1742884

PATIENT

DRUGS (2)
  1. BEVACIZUMAB [Suspect]
     Active Substance: BEVACIZUMAB
     Indication: NON-SMALL CELL LUNG CANCER
     Dosage: ON DAY 1 OF A 21-DAY CYCLE
     Route: 065
  2. PEMETREXED [Suspect]
     Active Substance: PEMETREXED
     Indication: NON-SMALL CELL LUNG CANCER
     Route: 065

REACTIONS (5)
  - Infection [Unknown]
  - Decreased appetite [Unknown]
  - Anaemia [Unknown]
  - Haemorrhage [Unknown]
  - Leukopenia [Unknown]
